FAERS Safety Report 18730584 (Version 3)
Quarter: 2021Q2

REPORT INFORMATION
  Report Type: Spontaneous
  Country: US (occurrence: US)
  Receive Date: 20210112
  Receipt Date: 20210505
  Transmission Date: 20210717
  Serious: Yes (Other)
  Sender: FDA-Public Use
  Company Number: US-PFIZER INC-2021010645

PATIENT
  Age: 59 Year
  Sex: Male

DRUGS (1)
  1. XELJANZ XR [Suspect]
     Active Substance: TOFACITINIB CITRATE
     Indication: RHEUMATOID ARTHRITIS
     Dosage: 11 MG

REACTIONS (10)
  - Skin fragility [Unknown]
  - Scab [Unknown]
  - Condition aggravated [Unknown]
  - Tuberculosis [Unknown]
  - Rash [Unknown]
  - Skin lesion [Unknown]
  - Infection [Unknown]
  - Wound [Unknown]
  - Erythema [Unknown]
  - Swelling [Unknown]
